FAERS Safety Report 4479855-0 (Version None)
Quarter: 2004Q3

REPORT INFORMATION
  Report Type: 
  Country: None (occurrence: None)
  Receive Date: 20040923
  Receipt Date: 20040817
  Transmission Date: 20050211
  Serious: Yes (Other)
  Sender: FDA-Public Use
  Company Number: USA040464938

PATIENT
  Age: 83 Year
  Sex: Female
  Weight: 69 kg

DRUGS (9)
  1. FORTEO [Suspect]
     Indication: OSTEOPOROSIS
     Dosage: 20 UG/1 DAY
     Dates: start: 20040301, end: 20040412
  2. ELAVIL [Concomitant]
  3. REGLAN [Concomitant]
  4. MULTIVITAMIN [Concomitant]
  5. CELEBREX [Concomitant]
  6. SENOKOT [Concomitant]
  7. CARDIZEM [Concomitant]
  8. OSCAL (CALCIUM CARBONATE) [Concomitant]
  9. COUMADIN [Concomitant]

REACTIONS (4)
  - ASTHENIA [None]
  - DEPRESSION [None]
  - DIZZINESS [None]
  - FEELING ABNORMAL [None]
